FAERS Safety Report 18797703 (Version 2)
Quarter: 2021Q1

REPORT INFORMATION
  Report Type: Report from Study
  Country: US (occurrence: US)
  Receive Date: 20210128
  Receipt Date: 20210303
  Transmission Date: 20210419
  Serious: Yes (Hospitalization)
  Sender: FDA-Public Use
  Company Number: US-BAUSCH-BL-2020-016216

PATIENT
  Age: 73 Year
  Sex: Female
  Weight: 87.4 kg

DRUGS (2)
  1. XIFAXAN [Suspect]
     Active Substance: RIFAXIMIN
     Indication: HEPATIC ENCEPHALOPATHY
     Route: 048
     Dates: start: 20190925, end: 202004
  2. XIFAXAN [Suspect]
     Active Substance: RIFAXIMIN
     Route: 048
     Dates: start: 2020

REACTIONS (6)
  - Cystitis [Unknown]
  - Fall [Unknown]
  - Asthenia [Unknown]
  - Insurance issue [Unknown]
  - Therapy interrupted [Unknown]
  - Confusional state [Unknown]

NARRATIVE: CASE EVENT DATE: 2020
